FAERS Safety Report 23416546 (Version 1)
Quarter: 2024Q1

REPORT INFORMATION
  Report Type: Report from Study
  Country: CN (occurrence: CN)
  Receive Date: 20240118
  Receipt Date: 20240118
  Transmission Date: 20240409
  Serious: Yes (Death)
  Sender: FDA-Public Use
  Company Number: CN-UCBSA-2024002266

PATIENT
  Sex: Female

DRUGS (4)
  1. LEVETIRACETAM [Suspect]
     Active Substance: LEVETIRACETAM
     Indication: Early infantile epileptic encephalopathy with burst-suppression
     Dosage: UNK
  2. LEVETIRACETAM [Suspect]
     Active Substance: LEVETIRACETAM
     Indication: Off label use
  3. ACTH [Suspect]
     Active Substance: CORTICOTROPIN
     Indication: Early infantile epileptic encephalopathy with burst-suppression
     Dosage: UNK
  4. PHENOBARBITAL [Suspect]
     Active Substance: PHENOBARBITAL
     Indication: Early infantile epileptic encephalopathy with burst-suppression
     Dosage: UNK

REACTIONS (3)
  - Sudden unexplained death in epilepsy [Fatal]
  - Off label use [Unknown]
  - Multiple-drug resistance [Unknown]
